FAERS Safety Report 6940772-5 (Version None)
Quarter: 2010Q3

REPORT INFORMATION
  Report Type: 
  Country: None (occurrence: None)
  Receive Date: 20100824
  Receipt Date: 20100824
  Transmission Date: 20110219
  Serious: Yes (Death)
  Sender: FDA-Public Use
  Company Number: None

PATIENT
  Sex: Male
  Weight: 72.5755 kg

DRUGS (2)
  1. CHANTIX [Suspect]
  2. LEXAPRO [Suspect]

REACTIONS (3)
  - COMPLETED SUICIDE [None]
  - MOOD SWINGS [None]
  - PERSONALITY CHANGE [None]
